FAERS Safety Report 24336814 (Version 1)
Quarter: 2024Q3

REPORT INFORMATION
  Report Type: Spontaneous
  Country: US (occurrence: US)
  Receive Date: 20240919
  Receipt Date: 20240919
  Transmission Date: 20241016
  Serious: No
  Sender: ROCHE
  Company Number: US-ROCHE-10000085384

PATIENT
  Age: 52 Year
  Sex: Male
  Weight: 102.05 kg

DRUGS (1)
  1. OCREVUS [Suspect]
     Active Substance: OCRELIZUMAB
     Indication: Multiple sclerosis
     Dosage: 300 MG EVERY 2 WEEKS TIMES 2 INFUSIONS. INCREASE FROM 300 MG TO 600 MG EVERY 6 MONTHS AFTER
     Route: 042
     Dates: start: 20240909

REACTIONS (3)
  - Oral pruritus [Recovered/Resolved]
  - Throat irritation [Recovered/Resolved]
  - Dysarthria [Recovered/Resolved]

NARRATIVE: CASE EVENT DATE: 20240909
